FAERS Safety Report 8474630-4 (Version None)
Quarter: 2012Q2

REPORT INFORMATION
  Report Type: 
  Country: None (occurrence: None)
  Receive Date: 20120622
  Receipt Date: 20120613
  Transmission Date: 20120825
  Serious: Yes (Other)
  Sender: FDA-Public Use
  Company Number: AUR-APL-2012-02585

PATIENT
  Age: 66 Year
  Sex: Male

DRUGS (5)
  1. CLOPIDEGREL [Concomitant]
  2. RAMIPRIL [Suspect]
     Indication: HYPERTENSION
     Dosage: 2.5 MG (2.5 MG, 1 IN 1 D), ORAL
     Route: 048
     Dates: start: 20120216, end: 20120508
  3. DILTIAZEM HYDROCHLORIDE [Concomitant]
  4. SIMVASTATIN [Concomitant]
  5. ASPIRIN [Concomitant]

REACTIONS (5)
  - DRY SKIN [None]
  - OEDEMA [None]
  - EXFOLIATIVE RASH [None]
  - DERMATITIS BULLOUS [None]
  - WITHDRAWAL SYNDROME [None]
